FAERS Safety Report 24766137 (Version 1)
Quarter: 2024Q4

REPORT INFORMATION
  Report Type: Spontaneous
  Country: US (occurrence: US)
  Receive Date: 20241223
  Receipt Date: 20241223
  Transmission Date: 20250115
  Serious: Yes (Other)
  Sender: PERRIGO
  Company Number: US-PERRIGO-24US011626

PATIENT

DRUGS (1)
  1. NAPROXEN SODIUM [Suspect]
     Active Substance: NAPROXEN SODIUM
     Indication: Back pain
     Dosage: UNKNOWN, UNKNOWN
     Route: 048

REACTIONS (3)
  - Diarrhoea haemorrhagic [Unknown]
  - Abdominal discomfort [Unknown]
  - Drug ineffective [Unknown]
